FAERS Safety Report 22036445 (Version 1)
Quarter: 2023Q1

REPORT INFORMATION
  Report Type: Spontaneous
  Country: DK (occurrence: DK)
  Receive Date: 20230225
  Receipt Date: 20230225
  Transmission Date: 20230417
  Serious: Yes (Hospitalization)
  Sender: FDA-Public Use
  Company Number: DK-002147023-NVSC2023DK038029

PATIENT
  Age: 47 Year
  Sex: Female

DRUGS (2)
  1. DICLOXACILLIN SODIUM [Suspect]
     Active Substance: DICLOXACILLIN SODIUM
     Indication: Breast cyst
     Dosage: UNK, (AFTER 5 DAYS TREATMENT)
     Route: 065
     Dates: start: 20220927, end: 202210
  2. AMITRIPTYLINE [Concomitant]
     Active Substance: AMITRIPTYLINE
     Indication: Product used for unknown indication
     Dosage: UNK, (PN)
     Route: 065

REACTIONS (8)
  - Hepatic enzyme increased [Unknown]
  - Palpitations [Unknown]
  - Axillary pain [Unknown]
  - Abdominal discomfort [Not Recovered/Not Resolved]
  - Back pain [Not Recovered/Not Resolved]
  - Dysuria [Recovered/Resolved]
  - Chest pain [Not Recovered/Not Resolved]
  - Drug hypersensitivity [Not Recovered/Not Resolved]
